FAERS Safety Report 13864096 (Version 1)
Quarter: 2017Q3

REPORT INFORMATION
  Report Type: Spontaneous
  Country: US (occurrence: US)
  Receive Date: 20170811
  Receipt Date: 20170811
  Transmission Date: 20171127
  Serious: Yes (Hospitalization, Other)
  Sender: FDA-Public Use
  Company Number: None

PATIENT
  Age: 53 Year
  Sex: Female
  Weight: 54 kg

DRUGS (1)
  1. AZACITIDINE. [Suspect]
     Active Substance: AZACITIDINE
     Indication: MYELODYSPLASTIC SYNDROME
     Route: 058
     Dates: start: 20170731, end: 20170801

REACTIONS (12)
  - Urinary tract infection [None]
  - Conjunctival hyperaemia [None]
  - Tenderness [None]
  - Vulvar erosion [None]
  - Foreign body sensation in eyes [None]
  - Macule [None]
  - Rash pruritic [None]
  - Oral pustule [None]
  - Vulvovaginal pain [None]
  - Lip dry [None]
  - Pain in extremity [None]
  - Gait disturbance [None]

NARRATIVE: CASE EVENT DATE: 20170801
